FAERS Safety Report 21047140 (Version 1)
Quarter: 2022Q3

REPORT INFORMATION
  Report Type: Spontaneous
  Country: US (occurrence: None)
  Receive Date: 20220705
  Receipt Date: 20220705
  Transmission Date: 20221027
  Serious: Yes (Hospitalization, Other)
  Sender: FDA-Public Use
  Company Number: None

PATIENT
  Age: 65 Year
  Sex: Male
  Weight: 98.9 kg

DRUGS (3)
  1. EVUSHELD [Suspect]
     Active Substance: CILGAVIMAB\TIXAGEVIMAB
     Indication: Immunodeficiency
     Dosage: 300MG ONCE ULTRAMUSCULAR?
     Route: 030
     Dates: start: 20220629, end: 20220629
  2. Tretinoin oral [Concomitant]
     Dates: start: 20220319
  3. Arsenic IV [Concomitant]
     Dates: start: 20220319

REACTIONS (1)
  - Facial paralysis [None]

NARRATIVE: CASE EVENT DATE: 20220702
